FAERS Safety Report 10459446 (Version 1)
Quarter: 2014Q3

REPORT INFORMATION
  Report Type: Spontaneous
  Country: US (occurrence: US)
  Receive Date: 20140917
  Receipt Date: 20140917
  Transmission Date: 20150326
  Serious: No
  Sender: FDA-Public Use
  Company Number: US-PFIZER INC-2014255509

PATIENT
  Age: 2 Year
  Sex: Female

DRUGS (1)
  1. INFANTS ADVIL CONCENTRATED DROPS [Suspect]
     Active Substance: IBUPROFEN
     Dosage: 1.875 ML, FOUR TIMES A DAY
     Route: 048
     Dates: start: 20140911, end: 20140911

REACTIONS (1)
  - Hypersensitivity [Unknown]

NARRATIVE: CASE EVENT DATE: 20140911
